FAERS Safety Report 26008780 (Version 1)
Quarter: 2025Q4

REPORT INFORMATION
  Report Type: Report from Study
  Country: US (occurrence: US)
  Receive Date: 20251106
  Receipt Date: 20251106
  Transmission Date: 20260118
  Serious: Yes (Hospitalization)
  Sender: ABBVIE
  Company Number: US-ABBVIE-6521220

PATIENT
  Age: 71 Year
  Sex: Male

DRUGS (2)
  1. DUOPA [Suspect]
     Active Substance: CARBIDOPA\LEVODOPA
     Indication: Parkinson^s disease
     Dosage: CONTINUOUS 24-HOUR INFUSION
     Route: 050
  2. DUOPA [Suspect]
     Active Substance: CARBIDOPA\LEVODOPA

REACTIONS (4)
  - Urinary retention [Unknown]
  - Stoma site infection [Recovering/Resolving]
  - Haematochezia [Unknown]
  - Device issue [Unknown]

NARRATIVE: CASE EVENT DATE: 20240101
